FAERS Safety Report 18373903 (Version 1)
Quarter: 2020Q4

REPORT INFORMATION
  Report Type: Spontaneous
  Country: US (occurrence: US)
  Receive Date: 20201012
  Receipt Date: 20201012
  Transmission Date: 20210114
  Serious: Yes (Hospitalization, Other)
  Sender: FDA-Public Use
  Company Number: US-ELI_LILLY_AND_COMPANY-US202009013304

PATIENT
  Sex: Female

DRUGS (1)
  1. VERZENIO [Suspect]
     Active Substance: ABEMACICLIB
     Indication: PRODUCT USED FOR UNKNOWN INDICATION
     Dosage: 150 MG, BID
     Route: 048
     Dates: start: 202001

REACTIONS (9)
  - Abdominal discomfort [Recovering/Resolving]
  - Blood sodium decreased [Recovered/Resolved]
  - Thrombocytopenia [Recovered/Resolved]
  - Red blood cell count decreased [Recovered/Resolved]
  - COVID-19 [Recovering/Resolving]
  - Dyspnoea [Recovered/Resolved]
  - Diarrhoea [Recovering/Resolving]
  - Diabetes mellitus inadequate control [Unknown]
  - Embolism [Recovering/Resolving]
